FAERS Safety Report 8150546-8 (Version None)
Quarter: 2012Q1

REPORT INFORMATION
  Report Type: 
  Country: None (occurrence: None)
  Receive Date: 20120220
  Receipt Date: 20111121
  Transmission Date: 20120608
  Serious: Yes (Other)
  Sender: FDA-Public Use
  Company Number: FR-ASTELLAS-2011EU005569

PATIENT
  Sex: Male

DRUGS (11)
  1. URSOLVAN [Concomitant]
     Dosage: UNK
     Route: 065
  2. TACROLIMUS [Suspect]
     Dosage: 4 MG, UNKNOWN/D
     Route: 065
     Dates: start: 20111115
  3. PREDNISONE TAB [Concomitant]
     Dosage: UNK
     Route: 065
  4. FERROUS SULFATE TAB [Concomitant]
     Dosage: UNK
     Route: 065
  5. TACROLIMUS [Suspect]
     Indication: LIVER TRANSPLANT
     Dosage: 2 MG, UNKNOWN/D
     Route: 065
     Dates: start: 20110809
  6. OMEPRAZOLE [Concomitant]
     Dosage: UNK
     Route: 065
  7. ASPEGIC 325 [Concomitant]
     Dosage: UNK
     Route: 065
  8. TRUVADA [Concomitant]
     Dosage: UNK
     Route: 065
  9. TANGANIL [Concomitant]
     Dosage: UNK
     Route: 065
  10. PROGRAF [Suspect]
     Indication: LIVER TRANSPLANT
     Dosage: 3 MG, UNKNOWN/D
     Route: 065
     Dates: start: 20020613
  11. LEVOTHYROXINE SODIUM [Concomitant]
     Dosage: UNK
     Route: 065

REACTIONS (3)
  - ADVERSE DRUG REACTION [None]
  - NAUSEA [None]
  - VERTIGO [None]
